FAERS Safety Report 8813218 (Version 1)
Quarter: 2012Q4

REPORT INFORMATION
  Report Type: 
  Country: US (occurrence: US)
  Receive Date: 20120927
  Receipt Date: 20120927
  Transmission Date: 20130627
  Serious: No
  Sender: FDA-Public Use
  Company Number: US-AMGEN-USASP2012039971

PATIENT
  Age: 62 Year
  Sex: Female

DRUGS (1)
  1. PROLIA [Suspect]
     Indication: OSTEOPOROSIS POSTMENOPAUSAL
     Dosage: 60 mg, q6mo
     Dates: start: 201112

REACTIONS (5)
  - Feeling hot [Not Recovered/Not Resolved]
  - Headache [Not Recovered/Not Resolved]
  - Night sweats [Not Recovered/Not Resolved]
  - Back pain [Not Recovered/Not Resolved]
  - Erythema [Not Recovered/Not Resolved]
